FAERS Safety Report 12190022 (Version 1)
Quarter: 2016Q1

REPORT INFORMATION
  Report Type: Spontaneous
  Country: US (occurrence: None)
  Receive Date: 20160317
  Receipt Date: 20160317
  Transmission Date: 20160526
  Serious: No
  Sender: FDA-Public Use
  Company Number: None

PATIENT
  Age: 57 Year
  Sex: Female
  Weight: 80.74 kg

DRUGS (7)
  1. DRITHO-CREME HP [Suspect]
     Active Substance: ANTHRALIN
     Indication: ALOPECIA AREATA
     Route: 061
     Dates: start: 20160229, end: 20160229
  2. SPIRONOLACTONE. [Concomitant]
     Active Substance: SPIRONOLACTONE
  3. ELON NAIL COND. [Concomitant]
  4. CALCIUM [Concomitant]
     Active Substance: CALCIUM
  5. ELON RX TABS [Concomitant]
  6. NATURE^S BOUNTY (HAIR) [Concomitant]
  7. ATORVASTATIN [Concomitant]
     Active Substance: ATORVASTATIN

REACTIONS (1)
  - Application site pain [None]

NARRATIVE: CASE EVENT DATE: 20160229
